FAERS Safety Report 6427691-8 (Version None)
Quarter: 2009Q4

REPORT INFORMATION
  Report Type: 
  Country: None (occurrence: None)
  Receive Date: 20091105
  Receipt Date: 20091029
  Transmission Date: 20100525
  Serious: Yes (Other)
  Sender: FDA-Public Use
  Company Number: US-BIOGENIDEC-2009BI031563

PATIENT
  Age: 25 Year
  Sex: Female

DRUGS (9)
  1. TYSABRI [Suspect]
     Indication: MULTIPLE SCLEROSIS
     Route: 042
     Dates: start: 20090729
  2. BACLOFEN [Concomitant]
     Route: 048
  3. ENOXAPARIN SODIUM [Concomitant]
     Route: 058
  4. ESOMEPRAZOLE MAGNESIUM [Concomitant]
     Route: 048
  5. LACTOBACILLUS ACIDOPHILUS [Concomitant]
     Route: 048
  6. KEPPRA [Concomitant]
     Indication: EPILEPSY
     Route: 048
  7. METOPROLOL [Concomitant]
     Indication: TACHYCARDIA
     Route: 048
  8. REMERON [Concomitant]
     Route: 048
  9. POTASSIUM CHLORIDE [Concomitant]
     Route: 048

REACTIONS (10)
  - CANDIDURIA [None]
  - DEVICE RELATED INFECTION [None]
  - MULTIPLE SCLEROSIS RELAPSE [None]
  - PYREXIA [None]
  - SEPSIS [None]
  - STAPHYLOCOCCAL BACTERAEMIA [None]
  - STREPTOCOCCAL INFECTION [None]
  - TRACHEITIS [None]
  - URINARY RETENTION [None]
  - URINARY TRACT INFECTION [None]
